FAERS Safety Report 6833565-0 (Version None)
Quarter: 2010Q3

REPORT INFORMATION
  Report Type: 
  Country: None (occurrence: None)
  Receive Date: 20100712
  Receipt Date: 20070328
  Transmission Date: 20110219
  Serious: No
  Sender: FDA-Public Use
  Company Number: US-PFIZER INC-2007026300

PATIENT
  Sex: Male
  Weight: 101.6 kg

DRUGS (8)
  1. CHANTIX [Suspect]
     Indication: SMOKING CESSATION THERAPY
     Dates: start: 20060901
  2. COFFEE [Suspect]
  3. NICOTINE [Suspect]
  4. LOPRESSOR [Concomitant]
  5. VASOTEC [Concomitant]
  6. WARFARIN SODIUM [Concomitant]
  7. VYTORIN [Concomitant]
  8. CALCIUM [Concomitant]

REACTIONS (2)
  - HYPERHIDROSIS [None]
  - RHINORRHOEA [None]
